FAERS Safety Report 15334848 (Version 1)
Quarter: 2018Q3

REPORT INFORMATION
  Report Type: Spontaneous
  Country: CA (occurrence: CA)
  Receive Date: 20180830
  Receipt Date: 20180830
  Transmission Date: 20181010
  Serious: Yes (Other)
  Sender: FDA-Public Use
  Company Number: CA-009507513-1603CAN002992

PATIENT
  Sex: Female

DRUGS (1)
  1. NUVARING [Suspect]
     Active Substance: ETHINYL ESTRADIOL\ETONOGESTREL
     Indication: CONTRACEPTION
     Dosage: REMOVE AFTER THREE WEEKS, AS PRESCRIBED, WAIT 7 DAYS AND INSERT A NEW RING
     Route: 067
     Dates: start: 2012, end: 2014

REACTIONS (5)
  - Pregnancy on contraceptive [Recovered/Resolved]
  - Device expulsion [Unknown]
  - Unintended pregnancy [Recovered/Resolved]
  - Stress [Recovered/Resolved]
  - Circumstance or information capable of leading to medication error [Unknown]

NARRATIVE: CASE EVENT DATE: 2014
